FAERS Safety Report 13621262 (Version 1)
Quarter: 2017Q2

REPORT INFORMATION
  Report Type: Spontaneous
  Country: US (occurrence: US)
  Receive Date: 20170607
  Receipt Date: 20170607
  Transmission Date: 20170830
  Serious: No
  Sender: FDA-Public Use
  Company Number: US-PFIZER INC-2017246289

PATIENT
  Age: 63 Year
  Sex: Female
  Weight: 68.4 kg

DRUGS (3)
  1. FEMARA [Suspect]
     Active Substance: LETROZOLE
     Indication: BREAST CANCER STAGE IV
     Dosage: 2.5 MG, 1X/DAY
     Dates: start: 20170321, end: 20170321
  2. ZOMETA [Concomitant]
     Active Substance: ZOLEDRONIC ACID
     Indication: MINERAL SUPPLEMENTATION
     Dosage: UNK, INFUSED ONCE A MONTH
     Dates: start: 201703
  3. IBRANCE [Suspect]
     Active Substance: PALBOCICLIB
     Indication: BREAST CANCER STAGE IV
     Dosage: 125 MG ONE PILL, UNK
     Dates: start: 20170321

REACTIONS (4)
  - Nausea [Recovered/Resolved]
  - Expired product administered [Unknown]
  - Vomiting [Recovered/Resolved]
  - Dehydration [Recovered/Resolved]

NARRATIVE: CASE EVENT DATE: 20170321
